FAERS Safety Report 7271583-1 (Version None)
Quarter: 2011Q1

REPORT INFORMATION
  Report Type: 
  Country: None (occurrence: None)
  Receive Date: 20110203
  Receipt Date: 20110126
  Transmission Date: 20110831
  Serious: Yes (Death)
  Sender: FDA-Public Use
  Company Number: GB-TEVA-265225ISR

PATIENT
  Age: 21 Year
  Sex: Male

DRUGS (2)
  1. PROPRANOLOL [Suspect]
  2. DILTIAZEM [Suspect]

REACTIONS (7)
  - HEART RATE DECREASED [None]
  - INTENTIONAL OVERDOSE [None]
  - DEPRESSED LEVEL OF CONSCIOUSNESS [None]
  - PUPIL FIXED [None]
  - BLOOD PRESSURE IMMEASURABLE [None]
  - CARDIAC FAILURE ACUTE [None]
  - SUICIDE ATTEMPT [None]
